FAERS Safety Report 20976767 (Version 2)
Quarter: 2022Q3

REPORT INFORMATION
  Report Type: Spontaneous
  Country: US (occurrence: US)
  Receive Date: 20220617
  Receipt Date: 20220720
  Transmission Date: 20221026
  Serious: Yes (Other)
  Sender: FDA-Public Use
  Company Number: US-ORGANON-O2206USA001485

PATIENT
  Sex: Female
  Weight: 118.82 kg

DRUGS (1)
  1. NEXPLANON [Suspect]
     Active Substance: ETONOGESTREL
     Indication: Contraception
     Dosage: 1 IMPLANT OF 68 MG IN LEFT ARM
     Route: 059
     Dates: start: 20220519, end: 20220613

REACTIONS (7)
  - Device expulsion [Recovered/Resolved]
  - Implant site mass [Recovering/Resolving]
  - Implant site vesicles [Recovering/Resolving]
  - Implant site cyst [Recovering/Resolving]
  - Keloid scar [Recovering/Resolving]
  - Implant site pruritus [Recovering/Resolving]
  - Implant site irritation [Recovering/Resolving]

NARRATIVE: CASE EVENT DATE: 20220101
